FAERS Safety Report 9601940 (Version 1)
Quarter: 2013Q4

REPORT INFORMATION
  Report Type: Spontaneous
  Country: CA (occurrence: CA)
  Receive Date: 20131007
  Receipt Date: 20131007
  Transmission Date: 20140711
  Serious: Yes (Other)
  Sender: FDA-Public Use
  Company Number: CA-JNJFOC-20131000083

PATIENT
  Age: 12 Year
  Sex: Male

DRUGS (2)
  1. ACETAMINOPHEN WITH CODEINE PHOSPHATE [Suspect]
     Indication: PHARYNGITIS BACTERIAL
     Route: 065
  2. ERYTHROMYCIN [Interacting]
     Indication: PHARYNGITIS BACTERIAL
     Route: 065

REACTIONS (2)
  - Psychotic disorder [Recovered/Resolved]
  - Drug interaction [Recovered/Resolved]
